FAERS Safety Report 9420111 (Version 2)
Quarter: 2013Q4

REPORT INFORMATION
  Report Type: Spontaneous
  Country: FR (occurrence: FR)
  Receive Date: 20130725
  Receipt Date: 20131121
  Transmission Date: 20140711
  Serious: Yes (Other)
  Sender: FDA-Public Use
  Company Number: FR-TEVA-419783ISR

PATIENT
  Age: 47 Year
  Sex: Male

DRUGS (1)
  1. AMOXICILLIN TEVA 1 G [Suspect]
     Indication: PROPHYLAXIS
     Dosage: 2 GRAM DAILY;
     Route: 048
     Dates: start: 20130516, end: 20130516

REACTIONS (9)
  - Urticaria [Recovered/Resolved]
  - Dizziness [Recovered/Resolved]
  - Vomiting [Recovered/Resolved]
  - Diarrhoea [Recovered/Resolved]
  - Dyspnoea [Recovered/Resolved]
  - Oedema peripheral [Recovered/Resolved]
  - Face oedema [Recovered/Resolved]
  - Angioedema [Recovered/Resolved]
  - Hypersensitivity [Recovered/Resolved]
